FAERS Safety Report 14517379 (Version 3)
Quarter: 2022Q1

REPORT INFORMATION
  Report Type: Other
  Country: US (occurrence: None)
  Receive Date: 20180212
  Receipt Date: 20220118
  Transmission Date: 20220423
  Serious: Yes (Hospitalization, Other)
  Sender: FDA-Public Use
  Company Number: US-ROCHE-2065618

PATIENT
  Sex: Female

DRUGS (6)
  1. OCREVUS [Suspect]
     Active Substance: OCRELIZUMAB
     Indication: Relapsing multiple sclerosis
     Dosage: ON 07/SEP/2017, 300 MG ON DAY 1 AND DAY 15 FOLLOWED BY 600 MG EVERY SIX MONTHS. MOST RECENT INFUSION
     Route: 042
     Dates: start: 20171006
  2. OCREVUS [Suspect]
     Active Substance: OCRELIZUMAB
     Indication: Autoimmune disorder
     Dosage: INFUSE 300MG INTRAVENOUSLY ON DAY(S) 1 AND DAY(S) 15 THEN 600 MG EVERY 6 MONTHS
     Route: 042
  3. MEGESTROL [Concomitant]
     Active Substance: MEGESTROL
  4. GABAPENTIN [Concomitant]
     Active Substance: GABAPENTIN
  5. LORAZEPAM [Concomitant]
     Active Substance: LORAZEPAM
  6. OMEPRAZOLE [Concomitant]
     Active Substance: OMEPRAZOLE

REACTIONS (13)
  - Dyspnoea [Unknown]
  - Seizure [Unknown]
  - Multiple sclerosis [Unknown]
  - Tremor [Unknown]
  - Depression [Unknown]
  - Anxiety [Unknown]
  - Muscle spasms [Unknown]
  - Hot flush [Unknown]
  - Feeling cold [Unknown]
  - Insomnia [Unknown]
  - Hypophagia [Unknown]
  - Product prescribing error [Unknown]
  - Optic neuritis [Unknown]
